FAERS Safety Report 6810479-3 (Version None)
Quarter: 2010Q2

REPORT INFORMATION
  Report Type: 
  Country: None (occurrence: None)
  Receive Date: 20100630
  Receipt Date: 20100625
  Transmission Date: 20101027
  Serious: Yes (Hospitalization, Other)
  Sender: FDA-Public Use
  Company Number: US-PFIZER INC-2009299053

PATIENT
  Sex: Male
  Weight: 86 kg

DRUGS (25)
  1. BLINDED *IBUPROFEN [Suspect]
     Indication: OSTEOARTHRITIS
     Dosage: UNK
     Route: 048
     Dates: start: 20080318, end: 20090416
  2. NAPROXEN [Suspect]
     Indication: OSTEOARTHRITIS
     Dosage: UNK
     Route: 048
     Dates: start: 20080318, end: 20090416
  3. BLINDED *NO SUBJECT DRUG [Suspect]
     Indication: OSTEOARTHRITIS
     Dosage: UNK
     Route: 048
     Dates: start: 20080318, end: 20090416
  4. BLINDED *PLACEBO [Suspect]
     Indication: OSTEOARTHRITIS
     Dosage: UNK
     Route: 048
     Dates: start: 20080318, end: 20090416
  5. CELECOXIB [Suspect]
     Indication: OSTEOARTHRITIS
     Dosage: UNK
     Route: 048
     Dates: start: 20080318, end: 20090416
  6. IBUPROFEN [Suspect]
     Dosage: UNK
     Route: 048
     Dates: start: 20080318, end: 20090416
  7. NAPROXEN [Suspect]
     Dosage: UNK
     Route: 048
     Dates: start: 20080318, end: 20090416
  8. IBUPROFEN [Suspect]
     Indication: RHEUMATOID ARTHRITIS
  9. NAPROXEN [Suspect]
     Indication: RHEUMATOID ARTHRITIS
  10. BLINDED *NO SUBJECT DRUG [Suspect]
     Indication: RHEUMATOID ARTHRITIS
  11. BLINDED *PLACEBO [Suspect]
     Indication: RHEUMATOID ARTHRITIS
  12. CELECOXIB [Suspect]
     Indication: RHEUMATOID ARTHRITIS
  13. BLINDED IBUPROFEN [Suspect]
  14. NAPROXEN [Suspect]
  15. NEXIUM [Concomitant]
     Dosage: UNK
     Dates: start: 20080318, end: 20090416
  16. ACETYLSALICYLIC ACID [Concomitant]
     Dosage: UNK
     Route: 048
     Dates: start: 20080317
  17. CENTRUM SILVER [Concomitant]
     Dosage: UNK
     Route: 048
     Dates: start: 20090401
  18. CYMBALTA [Concomitant]
     Dosage: UNK
     Route: 048
     Dates: start: 20000101
  19. CITALOPRAM [Concomitant]
     Dosage: UNK
     Route: 048
     Dates: start: 20080101
  20. HYDROXYCHLOROQUINE [Concomitant]
     Dosage: UNK
     Route: 048
     Dates: start: 20070101
  21. OXCARBAZEPINE [Concomitant]
     Dosage: UNK
     Route: 048
     Dates: start: 20060101
  22. VYTORIN [Concomitant]
     Dosage: UNK
     Route: 048
     Dates: start: 19970101
  23. PLAVIX [Concomitant]
     Dosage: UNK
     Route: 048
     Dates: start: 20080522
  24. GLIMEPIRIDE [Concomitant]
     Dosage: UNK
     Route: 048
     Dates: start: 20000101
  25. NITROGLYCERIN [Concomitant]
     Dosage: UNK
     Route: 048
     Dates: start: 19970101

REACTIONS (5)
  - ATRIAL FIBRILLATION [None]
  - CHEST PAIN [None]
  - CORONARY ARTERY DISEASE [None]
  - DYSPNOEA [None]
  - THROMBOPHLEBITIS [None]
